FAERS Safety Report 16363179 (Version 1)
Quarter: 2019Q2

REPORT INFORMATION
  Report Type: Spontaneous
  Country: FR (occurrence: FR)
  Receive Date: 20190528
  Receipt Date: 20190528
  Transmission Date: 20190711
  Serious: Yes (Other)
  Sender: FDA-Public Use
  Company Number: FR-MYLANLABS-2019M1048843

PATIENT
  Age: 80 Year
  Sex: Male
  Weight: 84.4 kg

DRUGS (8)
  1. ISOPTINE [Concomitant]
     Active Substance: VERAPAMIL HYDROCHLORIDE
     Dosage: 120 MILLIGRAM, QD
     Route: 048
  2. RILMENIDINE ARROW [Concomitant]
     Active Substance: RILMENIDINE PHOSPHATE
     Dosage: 1 MILLIGRAM, QD
     Route: 048
  3. PRADAXA [Concomitant]
     Active Substance: DABIGATRAN ETEXILATE MESYLATE
     Dosage: 300 MILLIGRAM, QD
     Route: 048
  4. ACICLOVIR MYLAN [ACICLOVIR] [Suspect]
     Active Substance: ACYCLOVIR
     Indication: HERPES ZOSTER MENINGITIS
     Dosage: 30 MILLIGRAM/KILOGRAM, QD
     Route: 042
     Dates: start: 20180827
  5. PERINDOPRIL SANDOZ [Concomitant]
     Active Substance: PERINDOPRIL
     Dosage: 4 MILLIGRAM, QD
     Route: 048
  6. FUROSEMIDE ARROW [Concomitant]
     Active Substance: FUROSEMIDE
     Dosage: 40 MILLIGRAM, QD
     Route: 048
  7. DIGOXINE NATIVELLE [Concomitant]
     Active Substance: DIGOXIN
     Dosage: 0.25 MILLIGRAM, QD
     Route: 048
  8. DOLIPRANE [Concomitant]
     Active Substance: ACETAMINOPHEN
     Dosage: 6 DOSAGE FORM
     Route: 048

REACTIONS (2)
  - Extravasation [Recovering/Resolving]
  - Skin necrosis [Recovering/Resolving]

NARRATIVE: CASE EVENT DATE: 201809
